FAERS Safety Report 5672709-3 (Version None)
Quarter: 2008Q1

REPORT INFORMATION
  Report Type: 
  Country: None (occurrence: None)
  Receive Date: 20080319
  Receipt Date: 20070917
  Transmission Date: 20080703
  Serious: No
  Sender: FDA-Public Use
  Company Number: US-KINGPHARMUSA00001-K200701204

PATIENT

DRUGS (3)
  1. ALTACE [Suspect]
     Indication: HYPERTENSION
     Dosage: 2.5 MG, QD
     Route: 048
     Dates: start: 20070801, end: 20070101
  2. NPH INSULIN [Concomitant]
     Indication: DIABETES MELLITUS
     Dosage: BID IN THE MORNING
  3. HUMALOG [Concomitant]
     Indication: DIABETES MELLITUS
     Dosage: UNK, QD

REACTIONS (1)
  - DIARRHOEA [None]
